FAERS Safety Report 20869874 (Version 1)
Quarter: 2022Q2

REPORT INFORMATION
  Report Type: Spontaneous
  Country: US (occurrence: US)
  Receive Date: 20220525
  Receipt Date: 20220525
  Transmission Date: 20220720
  Serious: Yes (Death, Hospitalization, Other)
  Sender: FDA-Public Use
  Company Number: US-AMGEN-USASP2022085760

PATIENT

DRUGS (2)
  1. BLINATUMOMAB [Suspect]
     Active Substance: BLINATUMOMAB
     Indication: Acute lymphocytic leukaemia
     Dosage: UNK
     Route: 065
  2. HUMAN IMMUNOGLOBULIN G [Concomitant]
     Active Substance: HUMAN IMMUNOGLOBULIN G
     Route: 042

REACTIONS (46)
  - BK virus infection [Unknown]
  - Hypogammaglobulinaemia [Unknown]
  - Stenotrophomonas infection [Unknown]
  - Babesiosis [Unknown]
  - Infection [Fatal]
  - Enterovirus infection [Unknown]
  - Bacteroides infection [Unknown]
  - Clostridium difficile infection [Unknown]
  - Enterococcal infection [Unknown]
  - Pneumonia klebsiella [Unknown]
  - Lactobacillus infection [Unknown]
  - Pseudomonas infection [Unknown]
  - Serratia infection [Unknown]
  - Mucormycosis [Unknown]
  - Sepsis [Unknown]
  - Neutropenia [Unknown]
  - Osteomyelitis [Unknown]
  - Abdominal infection [Unknown]
  - Cytomegalovirus infection [Unknown]
  - Systemic mycosis [Unknown]
  - Therapy partial responder [Unknown]
  - Therapy non-responder [Unknown]
  - COVID-19 [Unknown]
  - Norovirus infection [Unknown]
  - Respiratory syncytial virus infection [Unknown]
  - Rhinovirus infection [Unknown]
  - Parainfluenzae virus infection [Unknown]
  - Human herpesvirus 6 infection [Unknown]
  - Influenza [Unknown]
  - Metapneumovirus infection [Unknown]
  - Herpes simplex [Unknown]
  - Epstein-Barr virus infection [Unknown]
  - Adenovirus infection [Unknown]
  - Escherichia infection [Unknown]
  - Proteus infection [Unknown]
  - Staphylococcal infection [Unknown]
  - Helicobacter infection [Unknown]
  - Candida infection [Unknown]
  - Upper respiratory tract infection [Unknown]
  - Lower respiratory tract infection [Unknown]
  - Urinary tract infection [Unknown]
  - Gastrointestinal infection [Unknown]
  - Oral infection [Unknown]
  - Infusion related reaction [Unknown]
  - Skin infection [Unknown]
  - Soft tissue infection [Unknown]
